FAERS Safety Report 6652495-0 (Version None)
Quarter: 2010Q1

REPORT INFORMATION
  Report Type: 
  Country: None (occurrence: None)
  Receive Date: 20100324
  Receipt Date: 20100311
  Transmission Date: 20100710
  Serious: Yes (Hospitalization)
  Sender: FDA-Public Use
  Company Number: 2010BM000068

PATIENT
  Age: 4 Year
  Sex: Male
  Weight: 16 kg

DRUGS (4)
  1. NAGLAZYME [Suspect]
     Indication: MUCOPOLYSACCHARIDOSIS VI
     Dosage: 15 MG;QW;IVDRP
     Route: 041
     Dates: start: 20080301
  2. ANTIINFLAMMATORY AGENTS [Concomitant]
  3. RANITIDINE [Concomitant]
  4. PARACETAMOL [Concomitant]

REACTIONS (6)
  - DECREASED APPETITE [None]
  - GASTRIC HAEMORRHAGE [None]
  - GASTROINTESTINAL HAEMORRHAGE [None]
  - HAEMATOCRIT DECREASED [None]
  - HAEMOGLOBIN DECREASED [None]
  - PLATELET COUNT DECREASED [None]
